FAERS Safety Report 12929649 (Version 2)
Quarter: 2016Q4

REPORT INFORMATION
  Report Type: Spontaneous
  Country: US (occurrence: US)
  Receive Date: 20161110
  Receipt Date: 20161115
  Transmission Date: 20170207
  Serious: Yes (Hospitalization)
  Sender: FDA-Public Use
  Company Number: US-CELGENEUS-USA-2016110664

PATIENT
  Sex: Female
  Weight: 77.18 kg

DRUGS (2)
  1. POMALYST [Suspect]
     Active Substance: POMALIDOMIDE
     Route: 048
     Dates: start: 201611
  2. POMALYST [Suspect]
     Active Substance: POMALIDOMIDE
     Indication: PLASMA CELL MYELOMA
     Route: 048
     Dates: start: 20160929

REACTIONS (7)
  - Nausea [Unknown]
  - Constipation [Unknown]
  - Pneumonia [Unknown]
  - Chest pain [Unknown]
  - Dehydration [Unknown]
  - Bone lesion [Unknown]
  - Vomiting [Unknown]

NARRATIVE: CASE EVENT DATE: 2016
